FAERS Safety Report 5048054-6 (Version None)
Quarter: 2006Q3

REPORT INFORMATION
  Report Type: 
  Country: None (occurrence: None)
  Receive Date: 20060710
  Receipt Date: 20060710
  Transmission Date: 20061208
  Serious: Yes (Hospitalization)
  Sender: FDA-Public Use
  Company Number: None

PATIENT
  Age: 48 Year
  Sex: Male
  Weight: 87.0906 kg

DRUGS (10)
  1. TARCEVA [Suspect]
     Indication: NEOPLASM MALIGNANT
     Dosage: 100 MG DAILY  ORALLY
     Route: 048
     Dates: start: 20060603
  2. AVASTIN [Suspect]
     Dosage: 10 MG/KG EVERY 2 WEEKS
     Dates: start: 20060517
  3. AVASTIN [Suspect]
     Dosage: 10 MG/KG EVERY 2 WEEKS
     Dates: start: 20060531
  4. AVASTIN [Suspect]
     Dosage: 10 MG/KG EVERY 2 WEEKS
     Dates: start: 20060614
  5. AVASTIN [Suspect]
     Dosage: 10 MG/KG EVERY 2 WEEKS
     Dates: start: 20060628
  6. CISPLATIN [Concomitant]
  7. EXTERNAL BEAM RADIATION [Concomitant]
  8. AUGMENTIN '125' [Concomitant]
  9. NYSTATIN [Concomitant]
  10. DURAGESIC-100 [Concomitant]

REACTIONS (9)
  - CANDIDIASIS [None]
  - DECREASED APPETITE [None]
  - DEHYDRATION [None]
  - MUCOSAL INFLAMMATION [None]
  - NAUSEA [None]
  - ODYNOPHAGIA [None]
  - PHARYNGOLARYNGEAL PAIN [None]
  - PYREXIA [None]
  - WEIGHT DECREASED [None]
